FAERS Safety Report 6454662-8 (Version None)
Quarter: 2009Q4

REPORT INFORMATION
  Report Type: 
  Country: None (occurrence: None)
  Receive Date: 20091118
  Receipt Date: 20091104
  Transmission Date: 20100525
  Serious: Yes (Hospitalization)
  Sender: FDA-Public Use
  Company Number: TRP_06453_2009

PATIENT
  Sex: Male
  Weight: 73.5 kg

DRUGS (7)
  1. RIBAVIRIN [Suspect]
     Indication: HEPATITIS C
     Dosage: (600 MG BID ORAL), (400 MG BID ORAL)
     Route: 048
     Dates: start: 20080502, end: 20090101
  2. RIBAVIRIN [Suspect]
     Indication: HEPATITIS C
     Dosage: (600 MG BID ORAL), (400 MG BID ORAL)
     Route: 048
     Dates: start: 20090101, end: 20090922
  3. INFERGEN [Suspect]
     Indication: HEPATITIS C
     Dosage: (15 UG QD SUBCUTANEOUS)
     Route: 058
     Dates: start: 20080829, end: 20090922
  4. PEG-INTRON [Suspect]
     Indication: HEPATITIS C
     Dosage: (1.5 MCG/ KG BODY WEIGHT)
     Dates: start: 20080502, end: 20080801
  5. CELEXA [Concomitant]
  6. FOLIC ACID [Concomitant]
  7. LEXAPRO [Concomitant]

REACTIONS (57)
  - AMMONIA DECREASED [None]
  - ANAEMIA [None]
  - APNOEIC ATTACK [None]
  - ASPARTATE AMINOTRANSFERASE INCREASED [None]
  - ASTHENIA [None]
  - BALANCE DISORDER [None]
  - BLOOD CHLORIDE DECREASED [None]
  - BLOOD GLUCOSE INCREASED [None]
  - BLOOD PRESSURE INCREASED [None]
  - BLOOD SODIUM DECREASED [None]
  - BLOOD THYROID STIMULATING HORMONE INCREASED [None]
  - CLONUS [None]
  - COGNITIVE DISORDER [None]
  - CONFUSIONAL STATE [None]
  - CONTUSION [None]
  - DECREASED APPETITE [None]
  - DEHYDRATION [None]
  - DRY MOUTH [None]
  - DYSKINESIA [None]
  - ECCHYMOSIS [None]
  - ENCEPHALITIS [None]
  - ENCEPHALOPATHY [None]
  - EXTENSOR PLANTAR RESPONSE [None]
  - FACIAL PALSY [None]
  - FALL [None]
  - FATIGUE [None]
  - HAEMOGLOBIN DECREASED [None]
  - HEAD INJURY [None]
  - HEMIPARESIS [None]
  - HEPATITIS C RNA POSITIVE [None]
  - HYPERTHYROIDISM [None]
  - HYPERTONIA [None]
  - HYPOGLYCAEMIA [None]
  - HYPONATRAEMIA [None]
  - HYPOPHAGIA [None]
  - IMPAIRED DRIVING ABILITY [None]
  - INFECTION [None]
  - LIVER DISORDER [None]
  - MENTAL STATUS CHANGES [None]
  - MUSCLE RIGIDITY [None]
  - MUSCULOSKELETAL STIFFNESS [None]
  - MYOCLONUS [None]
  - NAUSEA [None]
  - PALLOR [None]
  - PLATELET COUNT DECREASED [None]
  - PROGRESSIVE MULTIFOCAL LEUKOENCEPHALOPATHY [None]
  - PYREXIA [None]
  - RASH PAPULAR [None]
  - RESPIRATORY RATE INCREASED [None]
  - SOMNOLENCE [None]
  - SUDDEN CARDIAC DEATH [None]
  - TACHYCARDIA [None]
  - THERAPEUTIC RESPONSE DECREASED [None]
  - THYROXINE FREE INCREASED [None]
  - VOMITING [None]
  - WEIGHT DECREASED [None]
  - WHITE BLOOD CELL COUNT DECREASED [None]
